FAERS Safety Report 10229368 (Version 2)
Quarter: 2015Q4

REPORT INFORMATION
  Report Type: Report from Study
  Country: US (occurrence: US)
  Receive Date: 20140611
  Receipt Date: 20151023
  Transmission Date: 20160304
  Serious: Yes (Other)
  Sender: FDA-Public Use
  Company Number: US-ROCHE-1362767

PATIENT
  Sex: Female

DRUGS (11)
  1. LUCENTIS [Suspect]
     Active Substance: RANIBIZUMAB
     Indication: DIABETIC RETINOPATHY
     Route: 050
  2. VISINE (UNITED STATES) [Concomitant]
     Dosage: OD PRN
     Route: 065
  3. METFORMIN [Concomitant]
     Active Substance: METFORMIN HYDROCHLORIDE
  4. COMBIGAN [Concomitant]
     Active Substance: BRIMONIDINE TARTRATE\TIMOLOL MALEATE
     Dosage: OU MIDNIGHTS
     Route: 065
  5. TIMOLOL. [Concomitant]
     Active Substance: TIMOLOL
     Dosage: QHS
     Route: 065
  6. LUCENTIS [Suspect]
     Active Substance: RANIBIZUMAB
     Indication: DIABETIC EYE DISEASE
     Dosage: 6 WEEKS
     Route: 050
  7. LUCENTIS [Suspect]
     Active Substance: RANIBIZUMAB
     Indication: CYSTOID MACULAR OEDEMA
  8. LUCENTIS [Suspect]
     Active Substance: RANIBIZUMAB
     Indication: TYPE 1 DIABETES MELLITUS
  9. AVASTIN [Suspect]
     Active Substance: BEVACIZUMAB
     Indication: DIABETIC EYE DISEASE
     Route: 065
  10. AVASTIN [Suspect]
     Active Substance: BEVACIZUMAB
     Indication: DIABETIC RETINOPATHY
  11. LUMIGAN [Concomitant]
     Active Substance: BIMATOPROST
     Dosage: QHS
     Route: 065

REACTIONS (16)
  - Retinal exudates [Unknown]
  - Retinal haemorrhage [Unknown]
  - Strabismus [Unknown]
  - Cystoid macular oedema [Unknown]
  - Eye pruritus [Unknown]
  - Lacrimation increased [Unknown]
  - Eye pain [Unknown]
  - Headache [Unknown]
  - Hypertension [Unknown]
  - Syncope [Unknown]
  - Aneurysm [Unknown]
  - Off label use [Unknown]
  - Dry eye [Unknown]
  - Vision blurred [Unknown]
  - Eye allergy [Unknown]
  - Vitreous floaters [Unknown]
